FAERS Safety Report 8309211-6 (Version None)
Quarter: 2012Q2

REPORT INFORMATION
  Report Type: 
  Country: None (occurrence: None)
  Receive Date: 20120424
  Receipt Date: 20120409
  Transmission Date: 20120825
  Serious: Yes (Other)
  Sender: FDA-Public Use
  Company Number: CHPA2012US009050

PATIENT
  Sex: Female

DRUGS (3)
  1. MAALOX MAX [Concomitant]
     Dosage: UNK
     Route: 048
     Dates: start: 20110101, end: 20120101
  2. MAALOX                                  /USA/ [Concomitant]
     Dosage: 6-10 DF, QD
     Route: 048
     Dates: start: 20120101
  3. MAALOX ANTACID LIQUID - UNKNOWN [Suspect]
     Indication: GASTRIC ULCER
     Dosage: 1 SHOT GLASS, QID PRN
     Route: 048

REACTIONS (14)
  - INFECTION [None]
  - NAUSEA [None]
  - CONDITION AGGRAVATED [None]
  - FOOD INTOLERANCE [None]
  - DIARRHOEA [None]
  - WRONG TECHNIQUE IN DRUG USAGE PROCESS [None]
  - VOMITING [None]
  - OFF LABEL USE [None]
  - WEIGHT DECREASED [None]
  - SINUSITIS [None]
  - DIABETES MELLITUS [None]
  - GASTRITIS EROSIVE [None]
  - SWELLING FACE [None]
  - ABDOMINAL PAIN UPPER [None]
